FAERS Safety Report 4861434-4 (Version None)
Quarter: 2005Q4

REPORT INFORMATION
  Report Type: 
  Country: None (occurrence: None)
  Receive Date: 20051220
  Receipt Date: 20051209
  Transmission Date: 20060501
  Serious: Yes (Other)
  Sender: FDA-Public Use
  Company Number: US-JNJFOC-20051203161

PATIENT
  Sex: Male
  Weight: 68.04 kg

DRUGS (3)
  1. FENTANYL [Suspect]
     Route: 062
     Dates: start: 20050201
  2. DURAGESIC-100 [Suspect]
  3. OXYCODONE [Concomitant]

REACTIONS (9)
  - APPLICATION SITE DERMATITIS [None]
  - APPLICATION SITE ERYTHEMA [None]
  - APPLICATION SITE PRURITUS [None]
  - APPLICATION SITE VESICLES [None]
  - DRUG WITHDRAWAL SYNDROME [None]
  - HYPOVENTILATION [None]
  - MOOD SWINGS [None]
  - SUICIDAL IDEATION [None]
  - WEIGHT DECREASED [None]
